FAERS Safety Report 23428387 (Version 1)
Quarter: 2024Q1

REPORT INFORMATION
  Report Type: Spontaneous
  Country: US (occurrence: None)
  Receive Date: 20240122
  Receipt Date: 20240122
  Transmission Date: 20240410
  Serious: Yes (Hospitalization)
  Sender: FDA-Public Use
  Company Number: None

PATIENT
  Sex: Female

DRUGS (3)
  1. OPSUMIT [Suspect]
     Active Substance: MACITENTAN
     Indication: Pulmonary arterial hypertension
     Dosage: FREQUENCY : DAILY;?
     Route: 048
     Dates: start: 202110
  2. ADEMPAS [Concomitant]
     Active Substance: RIOCIGUAT
  3. ORENITRAM ER (PAP) [Concomitant]

REACTIONS (4)
  - Nausea [None]
  - Headache [None]
  - Fluid retention [None]
  - Infusion related reaction [None]
